FAERS Safety Report 5639124-X (Version None)
Quarter: 2008Q1

REPORT INFORMATION
  Report Type: 
  Country: None (occurrence: None)
  Receive Date: 20080226
  Receipt Date: 20080212
  Transmission Date: 20080703
  Serious: Yes (Hospitalization)
  Sender: FDA-Public Use
  Company Number: HU-ELI_LILLY_AND_COMPANY-HU200711002740

PATIENT
  Sex: Female
  Weight: 137 kg

DRUGS (15)
  1. LISPRO NPL [Suspect]
     Dosage: 29 IU, EACH MORNING
     Route: 058
     Dates: start: 20070712
  2. LISPRO NPL [Suspect]
     Dosage: 31 IU, EACH EVENING
     Route: 058
     Dates: start: 20070712
  3. LISPRO REGLISPRO [Suspect]
     Dosage: 3 IU, EACH MORNING
     Route: 058
     Dates: start: 20070712
  4. LISPRO REGLISPRO [Suspect]
     Dosage: 16 IU AT MIDDAY
     Route: 058
     Dates: start: 20070712
  5. LISPRO REGLISPRO [Suspect]
     Dosage: 19 IU, EACH EVENING
     Route: 058
     Dates: start: 20070712
  6. LISPRO REGLISPRO [Suspect]
     Dosage: 4 IU, EACH MORNING
     Route: 058
     Dates: start: 20070929
  7. BETALOC ZOK [Concomitant]
     Indication: HYPERTENSION
     Dosage: 50 MG, 2/D
     Route: 065
     Dates: start: 20020101
  8. CALCIUM DOBESILATE [Concomitant]
     Indication: PROPHYLAXIS
     Dosage: UNK, UNKNOWN
     Route: 065
     Dates: start: 20040101
  9. FRONTIN [Concomitant]
     Indication: DEPRESSION
     Dosage: 0.5 MG, 2/D
     Route: 065
     Dates: start: 19950101
  10. FLOXET [Concomitant]
     Dosage: 1 TABLET, EACH MORNING
     Route: 065
     Dates: start: 19950101
  11. ACECLOFENAC [Concomitant]
     Indication: POLYARTHRITIS
     Dosage: UNK, UNKNOWN
     Route: 065
     Dates: start: 20060501
  12. NORMODIPINE [Concomitant]
     Indication: HYPERTENSION
     Dosage: 5 MG, 2/D
     Route: 065
     Dates: start: 20020101
  13. EDNYT [Concomitant]
     Indication: HYPERTENSION
     Dosage: 1 TABLET, EACH MORNING
     Route: 065
     Dates: start: 20020101
  14. EDNYT [Concomitant]
     Dosage: 20 MG, EACH EVENING
     Dates: start: 20020101
  15. HYDROCHLORZIDE [Concomitant]
     Indication: HYPERTENSION
     Dosage: UNK, UNKNOWN
     Route: 066
     Dates: start: 20020101

REACTIONS (2)
  - CHEST PAIN [None]
  - DYSPNOEA EXERTIONAL [None]
